FAERS Safety Report 13584212 (Version 2)
Quarter: 2017Q3

REPORT INFORMATION
  Report Type: Spontaneous
  Country: US (occurrence: US)
  Receive Date: 20170526
  Receipt Date: 20170821
  Transmission Date: 20171127
  Serious: No
  Sender: FDA-Public Use
  Company Number: US-PFIZER INC-2017229711

PATIENT
  Age: 70 Year
  Sex: Male
  Weight: 81.65 kg

DRUGS (2)
  1. SINEMET [Suspect]
     Active Substance: CARBIDOPA\LEVODOPA
     Indication: RESTLESS LEGS SYNDROME
     Dosage: UNK UNK, 3X/DAY [CARBIDOPA: 25MG]/[LEVODOPA: 100MG]
     Route: 048
     Dates: start: 1999
  2. CHANTIX [Suspect]
     Active Substance: VARENICLINE TARTRATE
     Indication: SMOKING CESSATION THERAPY
     Dosage: UNK
     Dates: start: 200905, end: 200907

REACTIONS (1)
  - Abnormal dreams [Unknown]
